FAERS Safety Report 13967577 (Version 1)
Quarter: 2017Q3

REPORT INFORMATION
  Report Type: Spontaneous
  Country: US (occurrence: US)
  Receive Date: 20170914
  Receipt Date: 20170914
  Transmission Date: 20171128
  Serious: No
  Sender: FDA-Public Use
  Company Number: US-ENDO PHARMACEUTICALS INC-2017-003894

PATIENT
  Age: 10 Year
  Sex: Male

DRUGS (2)
  1. GUMMY MULTIVITAMINS [Concomitant]
     Indication: PRODUCT USED FOR UNKNOWN INDICATION
  2. DEXMETHYLPHENIDATE HYDROCHLORIDE. [Suspect]
     Active Substance: DEXMETHYLPHENIDATE HYDROCHLORIDE
     Indication: ATTENTION DEFICIT/HYPERACTIVITY DISORDER
     Dosage: 1 DF, OD
     Route: 048
     Dates: start: 20170625, end: 20170709

REACTIONS (5)
  - Decreased appetite [Recovering/Resolving]
  - Emotional disorder [Recovering/Resolving]
  - Product physical issue [Unknown]
  - Insomnia [Recovering/Resolving]
  - Product size issue [Unknown]

NARRATIVE: CASE EVENT DATE: 20170629
